FAERS Safety Report 5336315-2 (Version None)
Quarter: 2007Q2

REPORT INFORMATION
  Report Type: 
  Country: None (occurrence: None)
  Receive Date: 20070523
  Receipt Date: 20070515
  Transmission Date: 20071010
  Serious: Yes (Hospitalization)
  Sender: FDA-Public Use
  Company Number: 2007SP009390

PATIENT
  Age: 72 Year
  Sex: Female

DRUGS (2)
  1. EPTIFIBATIDE (S-P) [Suspect]
     Indication: ACUTE MYOCARDIAL INFARCTION
     Dates: start: 20070428
  2. LOVENOX [Suspect]
     Indication: ACUTE MYOCARDIAL INFARCTION
     Dosage: ONCE; SC
     Route: 058
     Dates: start: 20070428, end: 20070428

REACTIONS (2)
  - CORONARY ARTERY THROMBOSIS [None]
  - NO THERAPEUTIC RESPONSE [None]
